FAERS Safety Report 7213664-4 (Version None)
Quarter: 2011Q1

REPORT INFORMATION
  Report Type: 
  Country: None (occurrence: None)
  Receive Date: 20110106
  Receipt Date: 20101221
  Transmission Date: 20110831
  Serious: Yes (Life-Threatening)
  Sender: FDA-Public Use
  Company Number: JP-JNJFOC-20101207794

PATIENT
  Age: 10 Year
  Sex: Male
  Weight: 35.3 kg

DRUGS (5)
  1. INFLIXIMAB, RECOMBINANT [Suspect]
     Route: 042
  2. INFLIXIMAB, RECOMBINANT [Suspect]
     Indication: INFLAMMATORY BOWEL DISEASE
     Dosage: STOPPED AFTER 6TH INFUSION
     Route: 042
  3. INFLIXIMAB, RECOMBINANT [Suspect]
     Route: 042
  4. 5-AMINOSALICYLIC ACID [Concomitant]
     Indication: INFLAMMATORY BOWEL DISEASE
  5. INFLIXIMAB, RECOMBINANT [Suspect]
     Route: 042

REACTIONS (2)
  - INFLAMMATORY BOWEL DISEASE [None]
  - SEPSIS [None]
